FAERS Safety Report 16766641 (Version 1)
Quarter: 2019Q4

REPORT INFORMATION
  Report Type: Spontaneous
  Country: US (occurrence: US)
  Receive Date: 20190901
  Receipt Date: 20190901
  Transmission Date: 20200122
  Serious: No
  Sender: FDA-Public Use
  Company Number: None

PATIENT
  Age: 50 Year
  Sex: Female
  Weight: 92.25 kg

DRUGS (9)
  1. CALCIUM [Concomitant]
     Active Substance: CALCIUM
  2. ASA [Concomitant]
     Active Substance: ASPIRIN
  3. OMEPRAZOLE. [Concomitant]
     Active Substance: OMEPRAZOLE
  4. COLACE [Concomitant]
     Active Substance: DOCUSATE SODIUM
  5. MULTIVITAMIN [Concomitant]
     Active Substance: VITAMINS
  6. CHANTIX [Suspect]
     Active Substance: VARENICLINE TARTRATE
     Indication: SMOKING CESSATION THERAPY
     Route: 048
     Dates: start: 20190817
  7. FISH OIL [Concomitant]
     Active Substance: FISH OIL
  8. VITAMIN E [Concomitant]
     Active Substance: .ALPHA.-TOCOPHEROL
  9. LEVOTHYROXINE. [Concomitant]
     Active Substance: LEVOTHYROXINE

REACTIONS (3)
  - Nausea [None]
  - Taste disorder [None]
  - Restlessness [None]

NARRATIVE: CASE EVENT DATE: 20190829
